FAERS Safety Report 4716854-5 (Version None)
Quarter: 2005Q3

REPORT INFORMATION
  Report Type: 
  Country: None (occurrence: None)
  Receive Date: 20050714
  Receipt Date: 20050629
  Transmission Date: 20060218
  Serious: Yes (Other)
  Sender: FDA-Public Use
  Company Number: EM2005-0319

PATIENT
  Age: 64 Year
  Sex: Female
  Weight: 106.7 kg

DRUGS (12)
  1. PROLEUKIN [Suspect]
     Indication: MALIGNANT MELANOMA
     Dosage: SEE IMAGE
     Dates: start: 20050530, end: 20050603
  2. PROLEUKIN [Suspect]
     Indication: MALIGNANT MELANOMA
     Dosage: SEE IMAGE
     Dates: start: 20050627, end: 20050701
  3. DECITABINE (DECITABINE) [Suspect]
     Indication: MALIGNANT MELANOMA
     Dosage: 21 MG, SUBCUTAN.
     Route: 058
     Dates: start: 20050523, end: 20050527
  4. TYLENOL (PARACETAMOL) [Concomitant]
  5. INDOMETHACIN [Concomitant]
  6. RESTORIL [Concomitant]
  7. ZANTAC [Concomitant]
  8. CIPRO [Concomitant]
  9. ZOFRAN [Concomitant]
  10. PAXIL [Concomitant]
  11. ATARAX [Concomitant]
  12. MORPHINE SULFATE (MORPHINE SULFATE) [Concomitant]

REACTIONS (1)
  - NEUTROPENIA [None]
